FAERS Safety Report 21652693 (Version 1)
Quarter: 2022Q4

REPORT INFORMATION
  Report Type: Spontaneous
  Country: PL (occurrence: PL)
  Receive Date: 20221128
  Receipt Date: 20221128
  Transmission Date: 20230112
  Serious: Yes (Death, Life-Threatening)
  Sender: FDA-Public Use
  Company Number: PL-BAYER-2022P022918

PATIENT
  Age: 76 Year
  Sex: Male
  Weight: 70 kg

DRUGS (1)
  1. ULTRAVIST [Suspect]
     Active Substance: IOPROMIDE
     Indication: Computerised tomogram thorax
     Dosage: 80 ML, ONCE
     Route: 042
     Dates: start: 20221027, end: 20221027

REACTIONS (3)
  - Dizziness postural [Fatal]
  - Cough [Fatal]
  - Hypotension [Fatal]

NARRATIVE: CASE EVENT DATE: 20221027
